FAERS Safety Report 5030471-1 (Version None)
Quarter: 2006Q2

REPORT INFORMATION
  Report Type: 
  Country: None (occurrence: None)
  Receive Date: 20060620
  Receipt Date: 20060612
  Transmission Date: 20061013
  Serious: Yes (Other)
  Sender: FDA-Public Use
  Company Number: IE-BOEHRINGER INGELHEIM PHARMACEUTICALS, INC.-2006-DE-03030GD

PATIENT

DRUGS (2)
  1. NEVIRAPINE [Suspect]
     Route: 015
  2. ANTIRETROVIRAL DRUGS [Suspect]
     Route: 015

REACTIONS (2)
  - DRUG EXPOSURE DURING PREGNANCY [None]
  - HUMAN IMMUNODEFICIENCY VIRUS TRANSMISSION [None]
